FAERS Safety Report 8463923-2 (Version None)
Quarter: 2012Q2

REPORT INFORMATION
  Report Type: 
  Country: None (occurrence: None)
  Receive Date: 20120625
  Receipt Date: 20120613
  Transmission Date: 20120825
  Serious: Yes (Other)
  Sender: FDA-Public Use
  Company Number: US-ELI_LILLY_AND_COMPANY-US201206004758

PATIENT
  Sex: Female

DRUGS (1)
  1. FORTEO [Suspect]
     Indication: RHEUMATOID ARTHRITIS
     Dosage: UNK
     Dates: start: 20120501

REACTIONS (4)
  - PULMONARY MASS [None]
  - OFF LABEL USE [None]
  - BLOOD PRESSURE DECREASED [None]
  - CONVULSION [None]
